FAERS Safety Report 9209121 (Version 1)
Quarter: 2013Q2

REPORT INFORMATION
  Report Type: Spontaneous
  Country: JP (occurrence: JP)
  Receive Date: 20130404
  Receipt Date: 20130404
  Transmission Date: 20140414
  Serious: Yes (Hospitalization)
  Sender: FDA-Public Use
  Company Number: PHHY2013JP032325

PATIENT
  Age: 79 Year
  Sex: Male

DRUGS (3)
  1. RIVASTIGMIN [Suspect]
     Indication: DEMENTIA ALZHEIMER^S TYPE
     Dosage: 4.5 MG, DAILY
     Route: 062
     Dates: start: 2012, end: 2012
  2. RIVASTIGMIN [Suspect]
     Dosage: 9 MG, DAILY
     Route: 062
     Dates: start: 2012, end: 2012
  3. RIVASTIGMIN [Suspect]
     Dosage: 13.5 MG, DAILY
     Route: 062
     Dates: start: 2012, end: 20121220

REACTIONS (1)
  - Condition aggravated [Recovered/Resolved]
